FAERS Safety Report 25705074 (Version 1)
Quarter: 2025Q3

REPORT INFORMATION
  Report Type: Spontaneous
  Country: US (occurrence: US)
  Receive Date: 20250820
  Receipt Date: 20250820
  Transmission Date: 20251020
  Serious: Yes (Other)
  Sender: PROCTER AND GAMBLE
  Company Number: US-PROCTER_AND_GAMBLE-GS25077087

PATIENT
  Age: 53 Year
  Sex: Female
  Weight: 90.703 kg

DRUGS (1)
  1. SECRET INVISIBLE SOLID POWDER FRESH [Suspect]
     Active Substance: ALUMINUM ZIRCONIUM TRICHLOROHYDREX GLY
     Dosage: ONCE
     Dates: start: 202506, end: 202506

REACTIONS (2)
  - Tooth fracture [Not Recovered/Not Resolved]
  - Product packaging difficult to open [Unknown]

NARRATIVE: CASE EVENT DATE: 20250601
